FAERS Safety Report 9605084 (Version 2)
Quarter: 2013Q4

REPORT INFORMATION
  Report Type: Spontaneous
  Country: US (occurrence: US)
  Receive Date: 20131008
  Receipt Date: 20131008
  Transmission Date: 20140711
  Serious: Yes (Hospitalization)
  Sender: FDA-Public Use
  Company Number: US-009507513-2008-177914-NL

PATIENT
  Sex: Female
  Weight: 81.6 kg

DRUGS (12)
  1. NUVARING [Suspect]
     Indication: CONTRACEPTION
     Dosage: CONTINUING: NO
     Route: 067
     Dates: start: 20030806, end: 20050726
  2. DEPO-PROVERA [Suspect]
     Indication: PRODUCT USED FOR UNKNOWN INDICATION
     Dosage: UNK UNK, UNKNOWN
     Dates: start: 1998, end: 2008
  3. FEXOFENADINE HYDROCHLORIDE (+) PSEUDOEPHEDRINE HYDROCHLORIDE [Concomitant]
     Dates: start: 200403
  4. BIAXIN XL [Concomitant]
     Dates: start: 200403
  5. AUGMENTIN [Concomitant]
     Dates: start: 200405
  6. MACROBID (NITROFURANTOIN) [Concomitant]
     Dates: start: 200405
  7. CLOBETASOL PROPIONATE [Concomitant]
     Dates: start: 200501
  8. ACIPHEX [Concomitant]
     Dosage: 20 MG, QD
     Dates: start: 200501
  9. MK-7999 [Concomitant]
     Dosage: 400 MG, QD
     Dates: start: 200501
  10. CEFZIL [Concomitant]
     Dosage: 500 MG, BID
     Dates: start: 20050725
  11. FLEXERIL [Concomitant]
     Dates: start: 20050725
  12. MOTRIN [Concomitant]
     Dosage: TID PRN
     Dates: start: 20050725

REACTIONS (14)
  - Deep vein thrombosis [Recovering/Resolving]
  - Hypokalaemia [Recovered/Resolved]
  - Hidradenitis [Recovering/Resolving]
  - Gastrooesophageal reflux disease [Unknown]
  - Pharyngitis [Unknown]
  - Sinusitis [Unknown]
  - Pollakiuria [Recovering/Resolving]
  - Back pain [Unknown]
  - Urinary tract infection [Recovering/Resolving]
  - Breast cyst [Unknown]
  - Hypertension [Recovering/Resolving]
  - Adenoma benign [Unknown]
  - Fibrocystic breast disease [Unknown]
  - Maternal exposure before pregnancy [Recovered/Resolved]
